FAERS Safety Report 13407660 (Version 2)
Quarter: 2017Q2

REPORT INFORMATION
  Report Type: Report from Study
  Country: None (occurrence: CA)
  Receive Date: 20170406
  Receipt Date: 20170411
  Transmission Date: 20170830
  Serious: Yes (Hospitalization, Other)
  Sender: FDA-Public Use
  Company Number: CA-ABBVIE-17K-028-1932282-00

PATIENT
  Sex: Male
  Weight: 91.6 kg

DRUGS (8)
  1. FOLIC ACID. [Concomitant]
     Active Substance: FOLIC ACID
     Indication: PRODUCT USED FOR UNKNOWN INDICATION
  2. HUMIRA [Suspect]
     Active Substance: ADALIMUMAB
     Indication: CROHN^S DISEASE
     Route: 058
     Dates: start: 20071130, end: 201612
  3. ATASOL [Concomitant]
     Active Substance: ACETAMINOPHEN
     Indication: PRODUCT USED FOR UNKNOWN INDICATION
  4. RABEPRAZOLE [Concomitant]
     Active Substance: RABEPRAZOLE
     Indication: PRODUCT USED FOR UNKNOWN INDICATION
  5. VITAMIN D [Concomitant]
     Active Substance: CHOLECALCIFEROL
     Indication: PRODUCT USED FOR UNKNOWN INDICATION
  6. INVANZ [Concomitant]
     Active Substance: ERTAPENEM SODIUM
     Indication: PRODUCT USED FOR UNKNOWN INDICATION
     Dates: end: 201612
  7. OLESTYR [Concomitant]
     Indication: PRODUCT USED FOR UNKNOWN INDICATION
  8. VITAMIN B12 [Concomitant]
     Active Substance: CYANOCOBALAMIN
     Indication: PRODUCT USED FOR UNKNOWN INDICATION

REACTIONS (29)
  - Encephalitis [Recovered/Resolved]
  - Mycobacterial infection [Unknown]
  - Intestinal stenosis [Unknown]
  - Purulence [Unknown]
  - Arthralgia [Recovering/Resolving]
  - Oral papule [Unknown]
  - Lung disorder [Unknown]
  - Tenosynovitis [Unknown]
  - Mycobacterium abscessus infection [Not Recovered/Not Resolved]
  - Mycobacterial infection [Recovering/Resolving]
  - Asthenia [Unknown]
  - Pain [Not Recovered/Not Resolved]
  - Cyst [Recovering/Resolving]
  - Arthralgia [Not Recovered/Not Resolved]
  - Mouth ulceration [Unknown]
  - Impaired healing [Recovered/Resolved]
  - Hepatic steatosis [Unknown]
  - Anal fistula [Unknown]
  - Osteoarthritis [Unknown]
  - Night sweats [Recovered/Resolved]
  - Cough [Recovered/Resolved]
  - Wrist deformity [Unknown]
  - Small intestinal obstruction [Recovered/Resolved]
  - Back pain [Unknown]
  - Ascites [Unknown]
  - Upper limb fracture [Unknown]
  - Hyperaemia [Unknown]
  - Chills [Recovered/Resolved]
  - Limb injury [Recovered/Resolved]

NARRATIVE: CASE EVENT DATE: 2016
